FAERS Safety Report 7170762-1 (Version None)
Quarter: 2010Q4

REPORT INFORMATION
  Report Type: 
  Country: None (occurrence: None)
  Receive Date: 20101217
  Receipt Date: 20101206
  Transmission Date: 20110411
  Serious: Yes (Hospitalization)
  Sender: FDA-Public Use
  Company Number: US-ELI_LILLY_AND_COMPANY-US201012001695

PATIENT
  Age: 15 Year
  Sex: Male

DRUGS (4)
  1. STRATTERA [Suspect]
  2. AMBIEN [Concomitant]
     Dosage: 80 MG, UNK
  3. HYDROCODONE [Concomitant]
  4. FLEXERIL [Concomitant]

REACTIONS (1)
  - DRUG ABUSE [None]
